FAERS Safety Report 7219964-6 (Version None)
Quarter: 2011Q1

REPORT INFORMATION
  Report Type: 
  Country: None (occurrence: None)
  Receive Date: 20110111
  Receipt Date: 20110110
  Transmission Date: 20110831
  Serious: Yes (Hospitalization, Other)
  Sender: FDA-Public Use
  Company Number: IT-ABBOTT-10P-083-0682970-00

PATIENT
  Sex: Male

DRUGS (3)
  1. APIXABAN [Suspect]
     Indication: THROMBOSIS PROPHYLAXIS
  2. NICOTINIC ACID [Suspect]
     Indication: PRODUCT USED FOR UNKNOWN INDICATION
  3. PLACEBO [Suspect]
     Indication: THROMBOSIS PROPHYLAXIS

REACTIONS (2)
  - URTICARIA [None]
  - DIABETES MELLITUS [None]
